FAERS Safety Report 15290212 (Version 1)
Quarter: 2018Q3

REPORT INFORMATION
  Report Type: Report from Study
  Country: US (occurrence: US)
  Receive Date: 20180817
  Receipt Date: 20180817
  Transmission Date: 20181010
  Serious: Yes (Hospitalization, Other)
  Sender: FDA-Public Use
  Company Number: US-JNJFOC-20180809774

PATIENT
  Age: 55 Year
  Sex: Female
  Weight: 90.72 kg

DRUGS (2)
  1. REMICADE [Suspect]
     Active Substance: INFLIXIMAB
     Indication: BEHCET^S SYNDROME
     Route: 042
     Dates: start: 201605
  2. REMICADE [Suspect]
     Active Substance: INFLIXIMAB
     Indication: BLINDNESS
     Route: 042
     Dates: start: 201605

REACTIONS (9)
  - Atypical pneumonia [Recovered/Resolved]
  - Influenza [Recovered/Resolved]
  - Sinusitis [Recovered/Resolved]
  - Pleural effusion [Recovered/Resolved]
  - Product use in unapproved indication [Unknown]
  - Off label use [Unknown]
  - Pneumonia [Recovered/Resolved]
  - Pneumothorax [Recovered/Resolved]
  - Adverse event [Recovered/Resolved]

NARRATIVE: CASE EVENT DATE: 201605
